FAERS Safety Report 13439502 (Version 1)
Quarter: 2017Q2

REPORT INFORMATION
  Report Type: Spontaneous
  Country: US (occurrence: US)
  Receive Date: 20170413
  Receipt Date: 20170413
  Transmission Date: 20170830
  Serious: Yes (Hospitalization, Other)
  Sender: FDA-Public Use
  Company Number: US-ASTRAZENECA-2017SE36140

PATIENT
  Sex: Female
  Weight: 45.4 kg

DRUGS (1)
  1. SYMBICORT [Suspect]
     Active Substance: BUDESONIDE\FORMOTEROL FUMARATE DIHYDRATE
     Indication: CHRONIC OBSTRUCTIVE PULMONARY DISEASE
     Dosage: 160/4.5 TWICE A DAY
     Route: 055
     Dates: start: 2002

REACTIONS (9)
  - Dyspnoea [Unknown]
  - Cervical vertebral fracture [Unknown]
  - Fall [Unknown]
  - Visual acuity reduced [Unknown]
  - Drug dose omission [Unknown]
  - Neuropathy peripheral [Unknown]
  - Circumstance or information capable of leading to medication error [Unknown]
  - Corneal disorder [Unknown]
  - Expired product administered [Unknown]
